FAERS Safety Report 15819888 (Version 3)
Quarter: 2019Q1

REPORT INFORMATION
  Report Type: Report from Study
  Country: DE (occurrence: DE)
  Receive Date: 20190114
  Receipt Date: 20190131
  Transmission Date: 20190417
  Serious: Yes (Other)
  Sender: FDA-Public Use
  Company Number: DE-BEH-2019098306

PATIENT
  Age: 72 Year
  Sex: Male

DRUGS (1)
  1. HUMAN FACTOR VIII (NON-COMPANY) [Suspect]
     Active Substance: ANTIHEMOPHILIC FACTOR HUMAN
     Indication: FACTOR VIII DEFICIENCY
     Route: 065

REACTIONS (2)
  - Hepatitis E antibody positive [Unknown]
  - Suspected transmission of an infectious agent via product [Unknown]
